FAERS Safety Report 7410335-6 (Version None)
Quarter: 2011Q2

REPORT INFORMATION
  Report Type: 
  Country: None (occurrence: None)
  Receive Date: 20110412
  Receipt Date: 20110404
  Transmission Date: 20111010
  Serious: Yes (Other)
  Sender: FDA-Public Use
  Company Number: US-GENENTECH-286618

PATIENT
  Sex: Female
  Weight: 94.331 kg

DRUGS (26)
  1. PULMICORT [Concomitant]
     Indication: ASTHMA
     Dosage: 1 MG, BID
  2. ZYRTEC [Concomitant]
     Indication: HYPERSENSITIVITY
     Dosage: 10 MG, QD
     Route: 048
  3. SINGULAIR [Concomitant]
     Indication: ASTHMA
     Dosage: 10 MG, QAM
     Route: 048
  4. ASTEPRO [Concomitant]
     Indication: RHINITIS ALLERGIC
     Dosage: 1 UNK, QD
  5. BENADRYL [Concomitant]
     Indication: PRODUCT USED FOR UNKNOWN INDICATION
  6. ZOFRAN [Concomitant]
     Indication: GASTROOESOPHAGEAL REFLUX DISEASE
     Dosage: UNK
     Route: 048
  7. ZEFORMIN XR [Concomitant]
     Indication: DIABETES MELLITUS
     Dosage: 30 MG/5ML, BID
     Route: 048
  8. NASONEX [Concomitant]
     Indication: HYPERSENSITIVITY
     Dosage: 1 UNK, QD
  9. ZANTAC [Concomitant]
     Indication: PRODUCT USED FOR UNKNOWN INDICATION
  10. TERAZOSIN [Concomitant]
     Indication: HYPERTENSION
     Dosage: 1 MG, QHS
     Route: 048
  11. HYDROCHLOROTHIAZIDE [Concomitant]
     Indication: HYPERTENSION
     Dosage: UNK
     Route: 048
  12. VERAPAMIL [Concomitant]
     Dosage: UNK
     Route: 048
  13. NASONEX [Concomitant]
     Dosage: UNK
  14. PROVENTIL [Concomitant]
     Indication: ASTHMA
     Dosage: 2 PUFF, PRN
  15. VERAPAMIL [Concomitant]
     Indication: HYPERTENSION
     Dosage: UNK
     Route: 048
  16. ADVAIR DISKUS 100/50 [Concomitant]
     Indication: ASTHMA
     Dosage: 1 PUFF, BID
  17. OMALIZUMAB [Suspect]
     Indication: SKIN TEST
     Dosage: UNK
     Route: 023
     Dates: start: 20090709, end: 20090709
  18. NEXIUM [Concomitant]
     Indication: GASTROOESOPHAGEAL REFLUX DISEASE
     Dosage: 20 MG, UNK
     Route: 048
  19. XOPENEX [Concomitant]
     Indication: ASTHMA
     Dosage: 1.25 UNK, PRN
  20. AVAPRO [Concomitant]
     Indication: HYPERTENSION
     Dosage: UNK
     Route: 048
  21. PREDNISONE [Concomitant]
     Indication: PRODUCT USED FOR UNKNOWN INDICATION
     Dosage: UNK
  22. UNKNOWN MEDICATION [Concomitant]
     Indication: DIABETES MELLITUS
     Dosage: 30 MG, BID
     Route: 048
  23. SINGULAIR [Concomitant]
     Indication: HYPERSENSITIVITY
  24. BENTYL [Concomitant]
     Indication: IRRITABLE BOWEL SYNDROME
     Dosage: UNK
     Route: 048
  25. TRAMADOL HCL [Concomitant]
     Indication: PAIN
     Dosage: 50 MG, PRN
     Route: 048
  26. CETIRIZINE HCL [Concomitant]
     Indication: ANTIALLERGIC THERAPY
     Dosage: 10 MG/5ML, QD
     Route: 048

REACTIONS (1)
  - STATUS ASTHMATICUS [None]
